FAERS Safety Report 15289825 (Version 6)
Quarter: 2018Q4

REPORT INFORMATION
  Report Type: Report from Study
  Country: IT (occurrence: IT)
  Receive Date: 20180817
  Receipt Date: 20181116
  Transmission Date: 20190204
  Serious: Yes (Death, Hospitalization)
  Sender: FDA-Public Use
  Company Number: IT-ROCHE-2169769

PATIENT
  Age: 68 Year
  Sex: Male
  Weight: 92 kg

DRUGS (12)
  1. SEEBRI [Concomitant]
     Active Substance: GLYCOPYRROLATE
     Dosage: 1 SPRAY
     Route: 045
  2. COVERLAM [Concomitant]
     Active Substance: AMLODIPINE BESYLATE\PERINDOPRIL ARGININE
     Route: 048
  3. ATEZOLIZUMAB. [Suspect]
     Active Substance: ATEZOLIZUMAB
     Indication: LUNG NEOPLASM MALIGNANT
     Dosage: DATE OF MOST RECENT DOSE (1200 MG) OF ATEZOLIZUMAB PRIOR TO SAE ONSET 19/JUL/2018: 11:20
     Route: 042
     Dates: start: 20180516
  4. PALEXIA [Concomitant]
     Active Substance: TAPENTADOL HYDROCHLORIDE
     Route: 048
  5. CACIT (ITALY) [Concomitant]
     Indication: PROPHYLAXIS
     Route: 048
  6. PANTORC [Concomitant]
     Active Substance: PANTOPRAZOLE SODIUM
     Indication: PROPHYLAXIS
     Route: 048
  7. MATRIFEN [Concomitant]
     Active Substance: FENTANYL
     Route: 061
  8. CARDIOASPIRIN [Concomitant]
     Active Substance: ASPIRIN
     Indication: PROPHYLAXIS
     Route: 048
     Dates: end: 20180816
  9. PALEXIA [Concomitant]
     Active Substance: TAPENTADOL HYDROCHLORIDE
     Route: 048
  10. LASIX [Concomitant]
     Active Substance: FUROSEMIDE
     Route: 048
  11. CLEXANE [Concomitant]
     Active Substance: ENOXAPARIN SODIUM
     Indication: PROPHYLAXIS
     Route: 058
     Dates: end: 20180913
  12. CEFTRIAXONE. [Concomitant]
     Active Substance: CEFTRIAXONE
     Indication: PROPHYLAXIS
     Route: 048
     Dates: start: 20180921

REACTIONS (1)
  - Pericarditis [Fatal]

NARRATIVE: CASE EVENT DATE: 20180801
